FAERS Safety Report 9697543 (Version 1)
Quarter: 2013Q4

REPORT INFORMATION
  Report Type: Spontaneous
  Country: US (occurrence: None)
  Receive Date: 20131119
  Receipt Date: 20131119
  Transmission Date: 20140711
  Serious: Yes (Disabling)
  Sender: FDA-Public Use
  Company Number: None

PATIENT
  Age: 28 Year
  Sex: Female
  Weight: 123.38 kg

DRUGS (4)
  1. MIRENA (LEVONORGESTREL-RELEASING INTRAUTERINE SYSTEM) [Suspect]
     Indication: CONTRACEPTION
     Dosage: INSERTED INTO UTERUS
     Route: 015
     Dates: start: 200810, end: 20130923
  2. PROZAC [Concomitant]
  3. LASIX [Concomitant]
  4. K-TAB POTASSIUM [Concomitant]

REACTIONS (4)
  - Blindness [None]
  - Visual impairment [None]
  - Benign intracranial hypertension [None]
  - Migraine [None]
